FAERS Safety Report 4841021-4 (Version None)
Quarter: 2005Q4

REPORT INFORMATION
  Report Type: 
  Country: None (occurrence: None)
  Receive Date: 20051130
  Receipt Date: 20050826
  Transmission Date: 20060501
  Serious: Yes (Hospitalization)
  Sender: FDA-Public Use
  Company Number: US-BRISTOL-MYERS SQUIBB COMPANY-13092192

PATIENT
  Age: 11 Year
  Sex: Female

DRUGS (3)
  1. ABILIFY [Suspect]
     Indication: AGGRESSION
     Route: 048
     Dates: start: 20050101
  2. ABILIFY [Suspect]
     Route: 048
     Dates: start: 20050101
  3. ABILIFY [Suspect]
     Route: 048
     Dates: start: 20050819

REACTIONS (1)
  - DYSTONIA [None]
